FAERS Safety Report 9350874 (Version 1)
Quarter: 2013Q2

REPORT INFORMATION
  Report Type: Spontaneous
  Country: US (occurrence: US)
  Receive Date: 20130617
  Receipt Date: 20130617
  Transmission Date: 20140414
  Serious: Yes (Other)
  Sender: FDA-Public Use
  Company Number: 2013SP001672

PATIENT
  Age: 58 Year
  Sex: Female
  Weight: 76 kg

DRUGS (5)
  1. OMNARIS NASAL SPRAY [Suspect]
     Indication: HYPERSENSITIVITY
     Route: 045
     Dates: start: 2011
  2. NASONEX [Suspect]
     Indication: HYPERSENSITIVITY
  3. LIPITOR [Concomitant]
     Indication: BLOOD CHOLESTEROL INCREASED
     Route: 048
     Dates: start: 201301
  4. ALEVE [Concomitant]
     Indication: ARTHRITIS
     Route: 048
  5. FLUTICASONE [Concomitant]
     Indication: HYPERSENSITIVITY
     Dates: end: 201305

REACTIONS (2)
  - Angle closure glaucoma [Recovering/Resolving]
  - Emotional disorder [Recovered/Resolved]
